FAERS Safety Report 8615136-9 (Version None)
Quarter: 2012Q3

REPORT INFORMATION
  Report Type: 
  Country: None (occurrence: None)
  Receive Date: 20120823
  Receipt Date: 20120814
  Transmission Date: 20120928
  Serious: No
  Sender: FDA-Public Use
  Company Number: US-BAYER-2012-084023

PATIENT

DRUGS (2)
  1. ALEVE (CAPLET) [Suspect]
     Indication: PAIN IN EXTREMITY
     Route: 048
  2. BIO-FREEZE [Concomitant]

REACTIONS (3)
  - INSOMNIA [None]
  - FATIGUE [None]
  - PAIN IN EXTREMITY [None]
